FAERS Safety Report 23351727 (Version 1)
Quarter: 2023Q4

REPORT INFORMATION
  Report Type: Spontaneous
  Country: US (occurrence: None)
  Receive Date: 20231229
  Receipt Date: 20231229
  Transmission Date: 20240109
  Serious: Yes (Other)
  Sender: FDA-Public Use
  Company Number: 2023A295572

PATIENT
  Age: 6 Month
  Sex: Female
  Weight: 8.1 kg

DRUGS (1)
  1. BEYFORTUS [Suspect]
     Active Substance: NIRSEVIMAB-ALIP
     Indication: Immunisation
     Dosage: 1 ML
     Route: 030
     Dates: start: 20231019, end: 20231019

REACTIONS (2)
  - Erythema multiforme [Unknown]
  - Adverse event following immunisation [Unknown]

NARRATIVE: CASE EVENT DATE: 20231021
